FAERS Safety Report 7719183-0 (Version None)
Quarter: 2011Q3

REPORT INFORMATION
  Report Type: 
  Country: None (occurrence: None)
  Receive Date: 20110830
  Receipt Date: 20110824
  Transmission Date: 20111222
  Serious: Yes (Other)
  Sender: FDA-Public Use
  Company Number: PHHY2011GB75613

PATIENT
  Age: 35 Year
  Sex: Female

DRUGS (2)
  1. CLOPIDOGREL [Suspect]
     Indication: THROMBOSIS PROPHYLAXIS
  2. ASPIRIN [Suspect]
     Indication: THROMBOSIS PROPHYLAXIS

REACTIONS (4)
  - POLYCYTHAEMIA [None]
  - EPISTAXIS [None]
  - PLATELET FUNCTION TEST ABNORMAL [None]
  - THROMBOCYTOPENIA [None]
